FAERS Safety Report 5947263-9 (Version None)
Quarter: 2008Q4

REPORT INFORMATION
  Report Type: 
  Country: None (occurrence: None)
  Receive Date: 20081110
  Receipt Date: 20081029
  Transmission Date: 20090506
  Serious: Yes (Disabling, Other)
  Sender: FDA-Public Use
  Company Number: GB-B.I. PHARMACEUTICALS,INC./RIDGEFIELD-2008-BP-16951YA

PATIENT
  Age: 72 Year
  Sex: Male
  Weight: 71 kg

DRUGS (2)
  1. FLOMAX [Suspect]
     Indication: PROSTATISM
     Dosage: 400MCG
     Route: 048
     Dates: start: 20040224, end: 20080904
  2. ACETAMINOPHEN [Concomitant]
     Indication: OSTEOARTHRITIS
     Dates: start: 20020521, end: 20050101

REACTIONS (2)
  - DERMATITIS BULLOUS [None]
  - SKIN ULCER [None]
